FAERS Safety Report 7108953-8 (Version None)
Quarter: 2010Q4

REPORT INFORMATION
  Report Type: 
  Country: None (occurrence: None)
  Receive Date: 20101117
  Receipt Date: 20101109
  Transmission Date: 20110411
  Serious: Yes (Hospitalization)
  Sender: FDA-Public Use
  Company Number: HR-ABBOTT-10P-216-0679594-00

PATIENT
  Age: 35 Year
  Sex: Male

DRUGS (3)
  1. HUMIRA [Suspect]
     Indication: CROHN'S DISEASE
  2. HUMIRA [Suspect]
     Route: 058
     Dates: start: 20100701, end: 20100701
  3. SULFASALAZAIN [Concomitant]
     Indication: CROHN'S DISEASE

REACTIONS (2)
  - ANAL FISTULA [None]
  - INTESTINAL PERFORATION [None]
